FAERS Safety Report 26207905 (Version 1)
Quarter: 2025Q4

REPORT INFORMATION
  Report Type: Spontaneous
  Country: US (occurrence: None)
  Receive Date: 20251226
  Receipt Date: 20251226
  Transmission Date: 20260117
  Serious: Yes (Life-Threatening)
  Sender: FDA-CTU
  Company Number: None

PATIENT
  Age: 37 Year
  Sex: Male
  Weight: 99 kg

DRUGS (1)
  1. COSMETICS [Suspect]
     Active Substance: COSMETICS
     Indication: Personal hygiene
     Dosage: 1 INHALATION(S) DAILY RESPIRATORY (INHALATION);
     Route: 055

REACTIONS (2)
  - Anaphylactic reaction [None]
  - Product use in unapproved indication [None]

NARRATIVE: CASE EVENT DATE: 20251223
